FAERS Safety Report 16895647 (Version 1)
Quarter: 2019Q4

REPORT INFORMATION
  Report Type: Spontaneous
  Country: US (occurrence: US)
  Receive Date: 20190814
  Receipt Date: 20190814
  Transmission Date: 20200122
  Serious: Yes (Other)
  Sender: FDA-Public Use
  Company Number: None

PATIENT
  Age: 72 Year
  Sex: Female
  Weight: 99.79 kg

DRUGS (9)
  1. ALPRAZOLAM. [Suspect]
     Active Substance: ALPRAZOLAM
     Indication: ANXIETY
     Dosage: ?          QUANTITY:120 MG MILLIGRAM(S);?
     Route: 048
     Dates: start: 2002
  2. OMEPRAZOLE. [Concomitant]
     Active Substance: OMEPRAZOLE
  3. LASIX [Concomitant]
     Active Substance: FUROSEMIDE
  4. POTASSIUM [Concomitant]
     Active Substance: POTASSIUM
  5. TIZANIDINE. [Concomitant]
     Active Substance: TIZANIDINE
  6. D-2 [Concomitant]
  7. IBUPROFEN. [Concomitant]
     Active Substance: IBUPROFEN
  8. ALPRAZOLAM. [Suspect]
     Active Substance: ALPRAZOLAM
     Indication: PANIC ATTACK
     Dosage: ?          QUANTITY:120 MG MILLIGRAM(S);?
     Route: 048
     Dates: start: 2002
  9. ALPRAZOLAM. [Suspect]
     Active Substance: ALPRAZOLAM
     Indication: POST-TRAUMATIC STRESS DISORDER
     Dosage: ?          QUANTITY:120 MG MILLIGRAM(S);?
     Route: 048
     Dates: start: 2002

REACTIONS (5)
  - Headache [None]
  - Somnolence [None]
  - Dry mouth [None]
  - Disturbance in attention [None]
  - Product substitution issue [None]
